FAERS Safety Report 9629944 (Version 3)
Quarter: 2013Q4

REPORT INFORMATION
  Report Type: Spontaneous
  Country: US (occurrence: US)
  Receive Date: 20131017
  Receipt Date: 20131118
  Transmission Date: 20140711
  Serious: Yes (Hospitalization, Other)
  Sender: FDA-Public Use
  Company Number: US-GILEAD-2013-0085578

PATIENT
  Age: 52 Year
  Sex: Male

DRUGS (3)
  1. LETAIRIS [Suspect]
     Indication: PORTOPULMONARY HYPERTENSION
     Dosage: 10 MG, QD
     Route: 048
     Dates: start: 20110104
  2. LETAIRIS [Suspect]
     Dates: start: 20110105
  3. ADCIRCA [Concomitant]

REACTIONS (1)
  - Liver transplant [Recovered/Resolved]
